FAERS Safety Report 9705898 (Version 1)
Quarter: 2013Q4

REPORT INFORMATION
  Report Type: Report from Study
  Country: CN (occurrence: CN)
  Receive Date: 20131122
  Receipt Date: 20131122
  Transmission Date: 20140711
  Serious: Yes (Hospitalization)
  Sender: FDA-Public Use
  Company Number: CN-US-EMD SERONO, INC.-7249126

PATIENT
  Age: 36 Year
  Sex: Female
  Weight: 80 kg

DRUGS (2)
  1. GONAL-F [Suspect]
     Indication: INFERTILITY
     Route: 058
     Dates: start: 20130729, end: 20130804
  2. GONAL-F [Suspect]
     Route: 058
     Dates: start: 20130805, end: 20130806

REACTIONS (1)
  - Multiple pregnancy [Recovered/Resolved]
